FAERS Safety Report 12495359 (Version 1)
Quarter: 2016Q2

REPORT INFORMATION
  Report Type: Other
  Country: DE (occurrence: DE)
  Receive Date: 20160624
  Receipt Date: 20160624
  Transmission Date: 20160815
  Serious: Yes (Other)
  Sender: FDA-Public Use
  Company Number: DE-CIPLA LTD.-2016DE08044

PATIENT

DRUGS (12)
  1. QUETIAPINE. [Interacting]
     Active Substance: QUETIAPINE
     Indication: DEPRESSION
     Dosage: 300MG/?
     Route: 048
  2. BACLOFEN. [Interacting]
     Active Substance: BACLOFEN
     Dosage: 3 X 10MG/TG
     Route: 065
  3. BROMAZEPAM [Interacting]
     Active Substance: BROMAZEPAM
     Indication: SLEEP DISORDER
     Dosage: 6 MG/?
     Route: 048
  4. FLUNITRAZEPAM [Interacting]
     Active Substance: FLUNITRAZEPAM
     Indication: SLEEP DISORDER
     Dosage: 1MG/?
     Route: 048
  5. GABAPENTIN. [Concomitant]
     Active Substance: GABAPENTIN
     Dosage: 2 X 300MG/TG.
     Route: 048
  6. TENOFOVIR/EMTRICITABINE [Suspect]
     Active Substance: EMTRICITABINE\TENOFOVIR
     Indication: HIV INFECTION
     Dosage: 1 DF/?
     Route: 065
  7. DARUNAVIR [Interacting]
     Active Substance: DARUNAVIR
     Indication: HIV INFECTION
     Dosage: 2 X 400MG/TG
     Route: 065
  8. OMEPRAZOLE. [Interacting]
     Active Substance: OMEPRAZOLE
     Indication: PROPHYLAXIS
     Dosage: 2 X 40MG/TG
     Route: 048
  9. DOXEPIN [Concomitant]
     Active Substance: DOXEPIN
     Indication: DEPRESSION
     Dosage: 50MG/?
     Route: 048
  10. GABAPENTIN. [Concomitant]
     Active Substance: GABAPENTIN
     Indication: PAIN
     Dosage: 4 X 300MG/TG
     Route: 048
  11. RITONAVIR. [Suspect]
     Active Substance: RITONAVIR
     Indication: HIV INFECTION
     Dosage: 100MG/?
     Route: 065
  12. SILDENAFIL. [Interacting]
     Active Substance: SILDENAFIL
     Dosage: 50MG/?
     Route: 048

REACTIONS (10)
  - Contraindicated drug administered [Unknown]
  - Substance abuse [Unknown]
  - Fatigue [Unknown]
  - Off label use [Unknown]
  - Incorrect dose administered [Unknown]
  - Drug withdrawal syndrome [Unknown]
  - Adverse event [Unknown]
  - Drug interaction [Unknown]
  - Drug administration error [Unknown]
  - Intentional product misuse [Unknown]
